FAERS Safety Report 6257935-7 (Version None)
Quarter: 2009Q3

REPORT INFORMATION
  Report Type: 
  Country: None (occurrence: None)
  Receive Date: 20090707
  Receipt Date: 20090619
  Transmission Date: 20100115
  Serious: Yes (Hospitalization)
  Sender: FDA-Public Use
  Company Number: JP-ASTRAZENECA-2009AP03246

PATIENT
  Age: 17957 Day
  Sex: Male
  Weight: 56 kg

DRUGS (3)
  1. XYLOCAINE [Suspect]
     Indication: INFILTRATION ANAESTHESIA
     Route: 058
     Dates: start: 20090514, end: 20090514
  2. SOSEGON [Suspect]
     Route: 042
     Dates: start: 20090514, end: 20090514
  3. CEZ [Suspect]
     Route: 042
     Dates: start: 20090514, end: 20090514

REACTIONS (2)
  - CONVULSION [None]
  - HYPERTHERMIA [None]
